FAERS Safety Report 8574335-5 (Version None)
Quarter: 2012Q3

REPORT INFORMATION
  Report Type: 
  Country: None (occurrence: None)
  Receive Date: 20120806
  Receipt Date: 20120723
  Transmission Date: 20120928
  Serious: No
  Sender: FDA-Public Use
  Company Number: US-ASTRAZENECA-2012SE45909

PATIENT
  Age: 44 Year
  Sex: Female

DRUGS (7)
  1. ADDERALL 5 [Concomitant]
  2. GATORADE [Concomitant]
  3. RECOVERITE [Interacting]
     Route: 065
  4. CHONDROITIN [Concomitant]
  5. ARIMIDEX [Interacting]
     Route: 048
  6. ARIMIDEX [Suspect]
     Indication: ENDOMETRIOSIS
     Route: 048
  7. GLUCOMIN [Concomitant]

REACTIONS (15)
  - HEAT EXHAUSTION [None]
  - ELECTROLYTE IMBALANCE [None]
  - HOT FLUSH [None]
  - DRUG INTERACTION [None]
  - DIZZINESS [None]
  - WEIGHT INCREASED [None]
  - NAUSEA [None]
  - OFF LABEL USE [None]
  - ANHIDROSIS [None]
  - ARTHRALGIA [None]
  - PAIN [None]
  - DIARRHOEA [None]
  - TEMPERATURE INTOLERANCE [None]
  - DEHYDRATION [None]
  - HEADACHE [None]
